FAERS Safety Report 6993954-0 (Version None)
Quarter: 2010Q3

REPORT INFORMATION
  Report Type: 
  Country: None (occurrence: None)
  Receive Date: 20100917
  Receipt Date: 20091209
  Transmission Date: 20110219
  Serious: Yes (Other)
  Sender: FDA-Public Use
  Company Number: US-ASTRAZENECA-2007UW09693

PATIENT
  Age: 16242 Day
  Sex: Female
  Weight: 84.4 kg

DRUGS (6)
  1. SEROQUEL [Suspect]
     Indication: DEPRESSION
     Route: 048
     Dates: start: 19970101, end: 20000901
  2. GLUCOPHAGE [Concomitant]
     Dates: start: 19980101
  3. ZOCOR [Concomitant]
     Dates: start: 19980101
  4. AMITRIPTYLINE HCL [Concomitant]
     Dosage: 25 MG QD-500 Q/HS
     Route: 048
     Dates: start: 19980101
  5. HYDROXYZINE [Concomitant]
     Dates: start: 19980101
  6. ZOLOFT [Concomitant]

REACTIONS (5)
  - CHRONIC OBSTRUCTIVE PULMONARY DISEASE [None]
  - HYPOGLYCAEMIA [None]
  - PANCREATITIS ACUTE [None]
  - TYPE 1 DIABETES MELLITUS [None]
  - TYPE 2 DIABETES MELLITUS [None]
